FAERS Safety Report 18763886 (Version 1)
Quarter: 2021Q1

REPORT INFORMATION
  Report Type: Report from Study
  Country: IT (occurrence: IT)
  Receive Date: 20210120
  Receipt Date: 20210120
  Transmission Date: 20210419
  Serious: Yes (Other)
  Sender: FDA-Public Use
  Company Number: IT-TEVA-2020-IT-1865525

PATIENT
  Age: 89 Year
  Sex: Male

DRUGS (9)
  1. ELIQUIS [Concomitant]
     Active Substance: APIXABAN
  2. DIBASE [Concomitant]
     Active Substance: CHOLECALCIFEROL
  3. TRITTICO 60 MG/ML GOCCE ORALI, SOLUZIONE [Concomitant]
     Active Substance: TRAZODONE HYDROCHLORIDE
     Dosage: UNIT DOSE : 12 GTT
  4. TRIATEC 10 MG COMPRESSE [Concomitant]
     Active Substance: RAMIPRIL
  5. NORVASC [Concomitant]
     Active Substance: AMLODIPINE BESYLATE
  6. QUETIAPINE FUMARATE. [Suspect]
     Active Substance: QUETIAPINE FUMARATE
     Indication: SENILE DEMENTIA
     Dosage: UNIT DOSE : 1 DOSAGE FORMS, OFF LABEL
     Route: 048
     Dates: end: 20201204
  7. FUROSEMIDE. [Concomitant]
     Active Substance: FUROSEMIDE
     Dosage: UNIT DOSE : 2 DOSAGE FORMS
  8. CLOTIAPINE [Concomitant]
     Active Substance: CLOTHIAPINE
  9. DOBETIN [Concomitant]

REACTIONS (2)
  - Medication error [Recovering/Resolving]
  - Sopor [Recovering/Resolving]

NARRATIVE: CASE EVENT DATE: 20201204
